FAERS Safety Report 5186942-0 (Version None)
Quarter: 2006Q4

REPORT INFORMATION
  Report Type: 
  Country: None (occurrence: None)
  Receive Date: 20061213
  Receipt Date: 20061129
  Transmission Date: 20070319
  Serious: Yes (Hospitalization)
  Sender: FDA-Public Use
  Company Number: 2006-151193-NL

PATIENT
  Age: 36 Year
  Sex: Female
  Weight: 69.6 kg

DRUGS (19)
  1. ORG 36286 AND PLACEBO OR PURGEON AND PLACEBO [Suspect]
     Indication: DRUG THERAPY
     Dosage: 150 UG DAILY SUBCUTANEOUS
     Route: 058
     Dates: start: 20061008, end: 20061008
  2. ORG 36286 AND PLACEBO OR PUREGON AND PLACEBO [Suspect]
     Indication: DRUG THERAPY
     Dosage: 200 IU DAILY SUBCUTANEOUS
     Route: 058
     Dates: start: 20061008, end: 20061014
  3. PUREGON [Suspect]
     Indication: DRUG THERAPY
     Dosage: SUBCUTANEOUS
     Route: 058
  4. ORGALUTRAN [Suspect]
     Indication: PROPHYLAXIS
     Dosage: SUBCUTANEOUS
     Route: 058
  5. PROGESTERONE [Suspect]
     Dosage: 200 MG DAILY, VAGINAL
     Route: 067
     Dates: start: 20061129
  6. PROGESTERONE [Suspect]
     Dosage: 50 MG DAILY INTRAMUSCULAR
     Route: 030
     Dates: start: 20061017, end: 20061128
  7. CHORIONIC GONADOTROPIN [Suspect]
     Indication: OVULATION INDUCTION
     Dosage: 10000 IU ONCE INTRAMUSCULAR
     Route: 030
     Dates: start: 20061015, end: 20061015
  8. TYLENOL [Concomitant]
  9. BENADRYL [Concomitant]
  10. MULTI-VITAMIN [Concomitant]
  11. LIDOCAINE [Concomitant]
  12. MIDAZOLAM HYDROCHLORIDE [Concomitant]
  13. SEVOFLURANE [Concomitant]
  14. DIPRIVAN [Concomitant]
  15. FENTANYL [Concomitant]
  16. TORADOL [Concomitant]
  17. PRENATAL VITAMINS [Concomitant]
  18. DOXYCYCLINE [Concomitant]
  19. MORPHINE [Concomitant]

REACTIONS (5)
  - ABDOMINAL PAIN LOWER [None]
  - DRUG EXPOSURE BEFORE PREGNANCY [None]
  - METRORRHAGIA [None]
  - NAUSEA [None]
  - RUPTURED ECTOPIC PREGNANCY [None]
